FAERS Safety Report 10966997 (Version 4)
Quarter: 2015Q2

REPORT INFORMATION
  Report Type: Report from Study
  Country: TR (occurrence: TR)
  Receive Date: 20150330
  Receipt Date: 20150626
  Transmission Date: 20150821
  Serious: Yes (Hospitalization, Other)
  Sender: FDA-Public Use
  Company Number: TR-ABBVIE-15K-161-1366954-00

PATIENT
  Age: 33 Year
  Sex: Male
  Weight: 90 kg

DRUGS (2)
  1. HUMIRA [Suspect]
     Active Substance: ADALIMUMAB
     Indication: ANKYLOSING SPONDYLITIS
     Route: 058
     Dates: start: 20141202, end: 20150216
  2. INH [Concomitant]
     Active Substance: ISONIAZID
     Indication: TUBERCULOSIS
     Route: 048
     Dates: start: 20141027

REACTIONS (5)
  - Renal mass [Recovered/Resolved]
  - Asthenia [Recovered/Resolved]
  - Back pain [Recovered/Resolved]
  - Renal cyst [Recovered/Resolved]
  - Arthropathy [Unknown]

NARRATIVE: CASE EVENT DATE: 20150216
